FAERS Safety Report 17564042 (Version 3)
Quarter: 2020Q1

REPORT INFORMATION
  Report Type: Report from Study
  Country: JP (occurrence: JP)
  Receive Date: 20200320
  Receipt Date: 20200331
  Transmission Date: 20200409
  Serious: Yes (Hospitalization, Other)
  Sender: FDA-Public Use
  Company Number: JP-ROCHE-2567048

PATIENT
  Age: 45 Year
  Sex: Male
  Weight: 63 kg

DRUGS (13)
  1. OXALIPLATIN. [Suspect]
     Active Substance: OXALIPLATIN
     Indication: RECTAL CANCER
     Dosage: DAY1
     Route: 041
     Dates: start: 20200227
  2. APREPITANT. [Concomitant]
     Active Substance: APREPITANT
     Dosage: DAY1
     Route: 048
     Dates: start: 20200227
  3. LOPERAMIDE HYDROCHLORIDE. [Concomitant]
     Active Substance: LOPERAMIDE HYDROCHLORIDE
     Route: 048
     Dates: start: 20200305
  4. DEXAMETHASONE. [Concomitant]
     Active Substance: DEXAMETHASONE
     Dosage: DAY1
     Route: 042
     Dates: start: 20200227
  5. ATROPINE. [Concomitant]
     Active Substance: ATROPINE
     Dosage: THE DAY1 DOSAGE IS UNCERTAIN.
     Route: 065
     Dates: start: 20200227
  6. BEVACIZUMAB. [Suspect]
     Active Substance: BEVACIZUMAB
     Indication: RECTAL CANCER
     Dosage: DAY1
     Route: 041
     Dates: start: 20200227
  7. CAPECITABINE. [Suspect]
     Active Substance: CAPECITABINE
     Indication: RECTAL CANCER
     Dosage: DAY1
     Route: 048
     Dates: start: 20200227
  8. DEXAMETHASONE. [Concomitant]
     Active Substance: DEXAMETHASONE
     Dosage: DAY2-3
     Route: 048
     Dates: start: 20200228
  9. MAGNESIUM OXIDE. [Concomitant]
     Active Substance: MAGNESIUM OXIDE
     Route: 048
     Dates: start: 20200120, end: 20200309
  10. PALONOSETRON HYDROCHLORIDE. [Concomitant]
     Active Substance: PALONOSETRON HYDROCHLORIDE
     Dosage: DAY1
     Route: 042
     Dates: start: 20200227
  11. APREPITANT. [Concomitant]
     Active Substance: APREPITANT
     Dosage: DAY2-3
     Route: 048
     Dates: start: 20200228
  12. PROCHLORPERAZINE MESILATE [Concomitant]
     Active Substance: PROCHLORPERAZINE DIMETHANESULFONATE
     Route: 048
     Dates: start: 20191210, end: 20200309
  13. IRINOTECAN HYDROCHLORIDE. [Suspect]
     Active Substance: IRINOTECAN HYDROCHLORIDE
     Indication: RECTAL CANCER
     Dosage: DAY1
     Route: 041
     Dates: start: 20200227

REACTIONS (2)
  - Enterocolitis [Recovered/Resolved]
  - Neutrophil count decreased [Unknown]

NARRATIVE: CASE EVENT DATE: 20200309
